FAERS Safety Report 4464836-3 (Version None)
Quarter: 2004Q4

REPORT INFORMATION
  Report Type: 
  Country: None (occurrence: None)
  Receive Date: 20041004
  Receipt Date: 20031022
  Transmission Date: 20050328
  Serious: No
  Sender: FDA-Public Use
  Company Number: 354372

PATIENT
  Age: 65 Year
  Sex: Female

DRUGS (4)
  1. COREG [Suspect]
     Dosage: 6.25MG TWICE PER DAY
     Route: 048
     Dates: start: 20030630
  2. DIURETIC [Concomitant]
  3. LIPITOR [Concomitant]
  4. SYNTHROID [Concomitant]

REACTIONS (1)
  - PALPITATIONS [None]
